FAERS Safety Report 5099896-2 (Version None)
Quarter: 2006Q3

REPORT INFORMATION
  Report Type: 
  Country: None (occurrence: None)
  Receive Date: 20060908
  Receipt Date: 20060721
  Transmission Date: 20061208
  Serious: Yes (Hospitalization, Other)
  Sender: FDA-Public Use
  Company Number: US-AMGEN-US187389

PATIENT
  Sex: Female
  Weight: 82.6 kg

DRUGS (4)
  1. ENBREL [Suspect]
     Indication: RHEUMATOID ARTHRITIS
     Route: 058
     Dates: start: 19980101, end: 20050624
  2. LOTREL [Concomitant]
  3. PREVACID [Concomitant]
  4. LEVOTHROID [Concomitant]

REACTIONS (26)
  - ANGIOMYOLIPOMA [None]
  - ANXIETY [None]
  - ASTHENIA [None]
  - ATELECTASIS [None]
  - BLOOD ALKALINE PHOSPHATASE INCREASED [None]
  - BLOOD LACTATE DEHYDROGENASE INCREASED [None]
  - BRONCHITIS [None]
  - CANDIDURIA [None]
  - CARDIAC TAMPONADE [None]
  - DECREASED APPETITE [None]
  - DEPRESSION [None]
  - DIASTOLIC DYSFUNCTION [None]
  - EMPYEMA [None]
  - INTERSTITIAL LUNG DISEASE [None]
  - LIVER FUNCTION TEST ABNORMAL [None]
  - LUNG INFILTRATION [None]
  - MENTAL STATUS CHANGES [None]
  - NAUSEA [None]
  - PERICARDIAL EFFUSION [None]
  - PERICARDITIS [None]
  - PLEURAL EFFUSION [None]
  - PLEURITIC PAIN [None]
  - PNEUMONIA [None]
  - PULMONARY HYPERTENSION [None]
  - RENAL FAILURE CHRONIC [None]
  - SEPSIS [None]
